FAERS Safety Report 19470756 (Version 4)
Quarter: 2021Q4

REPORT INFORMATION
  Report Type: Report from Study
  Country: IN (occurrence: IN)
  Receive Date: 20210629
  Receipt Date: 20211225
  Transmission Date: 20220303
  Serious: Yes (Hospitalization, Other)
  Sender: FDA-Public Use
  Company Number: NVSC2020IN319415

PATIENT
  Age: 70 Year
  Sex: Male

DRUGS (1)
  1. SACUBITRIL\VALSARTAN [Suspect]
     Active Substance: SACUBITRIL\VALSARTAN
     Indication: Cardiac failure
     Dosage: 0.5 DF, BID, (200 MG)
     Route: 048
     Dates: start: 20200928

REACTIONS (9)
  - COVID-19 [Recovered/Resolved]
  - Cataract [Recovered/Resolved]
  - Cough [Unknown]
  - Wrong technique in product usage process [Unknown]
  - Off label use [Unknown]
  - Dyspnoea [Recovered/Resolved]
  - Arthralgia [Recovering/Resolving]
  - Oedema peripheral [Not Recovered/Not Resolved]
  - Dyspnoea [Recovered/Resolved]

NARRATIVE: CASE EVENT DATE: 20200928
